FAERS Safety Report 22780542 (Version 3)
Quarter: 2023Q4

REPORT INFORMATION
  Report Type: Spontaneous
  Country: PA (occurrence: PA)
  Receive Date: 20230803
  Receipt Date: 20231001
  Transmission Date: 20240109
  Serious: Yes (Disabling)
  Sender: FDA-Public Use
  Company Number: PA-PFIZER INC-PV202300131263

PATIENT
  Age: 59 Year
  Sex: Female

DRUGS (2)
  1. ENBREL [Suspect]
     Active Substance: ETANERCEPT
     Indication: Product used for unknown indication
     Dosage: 50 MG, EVERY FORTNIGHT
     Route: 065
  2. ENBREL [Suspect]
     Active Substance: ETANERCEPT
     Dosage: 50 MG, WEEKLY
     Route: 065

REACTIONS (6)
  - Mobility decreased [Unknown]
  - Arthritis [Unknown]
  - Fall [Unknown]
  - Off label use [Unknown]
  - Arthralgia [Unknown]
  - Asthenia [Unknown]
